FAERS Safety Report 25492813 (Version 1)
Quarter: 2025Q2

REPORT INFORMATION
  Report Type: Spontaneous
  Country: US (occurrence: None)
  Receive Date: 20250627
  Receipt Date: 20250627
  Transmission Date: 20250717
  Serious: Yes (Life-Threatening)
  Sender: FDA-CTU
  Company Number: None

PATIENT
  Age: 25 Year
  Sex: Female
  Weight: 121.5 kg

DRUGS (5)
  1. LEVOCARNITINE\TIRZEPATIDE [Suspect]
     Active Substance: LEVOCARNITINE\TIRZEPATIDE
     Indication: Weight control
     Route: 058
     Dates: start: 20250503, end: 20250616
  2. LITHIUM [Concomitant]
     Active Substance: LITHIUM
  3. SERTRALINE [Concomitant]
     Active Substance: SERTRALINE HYDROCHLORIDE
  4. ILARIS [Concomitant]
     Active Substance: CANAKINUMAB
  5. b12 [Concomitant]

REACTIONS (5)
  - Saliva altered [None]
  - Choking [None]
  - Throat tightness [None]
  - Product compounding quality issue [None]
  - Product communication issue [None]

NARRATIVE: CASE EVENT DATE: 20250625
